FAERS Safety Report 9895887 (Version 2)
Quarter: 2014Q1

REPORT INFORMATION
  Report Type: Spontaneous
  Country: US (occurrence: US)
  Receive Date: 20140213
  Receipt Date: 20140213
  Transmission Date: 20141002
  Serious: No
  Sender: FDA-Public Use
  Company Number: US-BRISTOL-MYERS SQUIBB COMPANY-17301151

PATIENT
  Age: 57 Year
  Sex: Female

DRUGS (1)
  1. ORENCIA FOR INJ 250 MG/VIAL [Suspect]
     Indication: RHEUMATOID ARTHRITIS
     Dosage: LAST INF ON 06JAN2013,04FEB2013?POTENCY 250MG?DOSE:750MG
     Route: 042

REACTIONS (2)
  - Local swelling [Unknown]
  - Drug ineffective [Unknown]
